FAERS Safety Report 7180479-5 (Version None)
Quarter: 2010Q4

REPORT INFORMATION
  Report Type: 
  Country: None (occurrence: None)
  Receive Date: 20101123
  Receipt Date: 20100812
  Transmission Date: 20110411
  Serious: No
  Sender: FDA-Public Use
  Company Number: 017132

PATIENT
  Sex: Male

DRUGS (1)
  1. CIMZIA [Suspect]
     Dosage: (SUBCUTANEOUS)
     Route: 058
     Dates: start: 20100401

REACTIONS (3)
  - COELIAC DISEASE [None]
  - DIARRHOEA HAEMORRHAGIC [None]
  - FREQUENT BOWEL MOVEMENTS [None]
